FAERS Safety Report 8934929 (Version 2)
Quarter: 2012Q4

REPORT INFORMATION
  Report Type: Report from Study
  Country: US (occurrence: US)
  Receive Date: 20121129
  Receipt Date: 20121219
  Transmission Date: 20130627
  Serious: Yes (Death, Hospitalization, Other)
  Sender: FDA-Public Use
  Company Number: US-ACTELION-A-US2012-75002

PATIENT
  Age: 65 Year
  Sex: Female

DRUGS (1)
  1. TRACLEER [Suspect]
     Indication: PULMONARY ARTERIAL HYPERTENSION
     Route: 048

REACTIONS (8)
  - Death [Fatal]
  - Tracheostomy [Unknown]
  - Endotracheal intubation [Unknown]
  - Myocardial infarction [Unknown]
  - Dyspnoea [Unknown]
  - Oxygen saturation decreased [Unknown]
  - Stent placement [Unknown]
  - Lung infection [Unknown]
